FAERS Safety Report 7998890-9 (Version None)
Quarter: 2011Q4

REPORT INFORMATION
  Report Type: 
  Country: None (occurrence: None)
  Receive Date: 20111221
  Receipt Date: 20111220
  Transmission Date: 20120403
  Serious: Yes (Death, Hospitalization)
  Sender: FDA-Public Use
  Company Number: US-GLAXOSMITHKLINE-A0958808A

PATIENT
  Age: 47 Year
  Sex: Female

DRUGS (5)
  1. ADVAIR DISKUS 100/50 [Suspect]
     Indication: ASTHMA
     Dosage: 1PUFF TWICE PER DAY
     Route: 055
     Dates: start: 20111101
  2. MEDICATION FOR HIGH BLOOD PRESSURE [Concomitant]
  3. PROAIR HFA [Concomitant]
  4. NEBULIZER [Concomitant]
  5. PREDNISONE TAB [Concomitant]

REACTIONS (3)
  - OROPHARYNGITIS FUNGAL [None]
  - DYSPNOEA [None]
  - DEATH [None]
